FAERS Safety Report 16398328 (Version 1)
Quarter: 2019Q3

REPORT INFORMATION
  Report Type: Spontaneous
  Country: US (occurrence: US)
  Receive Date: 20190605
  Receipt Date: 20190605
  Transmission Date: 20191004
  Serious: Yes (Hospitalization)
  Sender: FDA-Public Use
  Company Number: None

PATIENT
  Age: 64 Year
  Sex: Female

DRUGS (15)
  1. CALCIUM CARBONATE. [Concomitant]
     Active Substance: CALCIUM CARBONATE
  2. GLUCOSAMINE-CHONDROIT-VOT C MN [Concomitant]
  3. PROBIOTIC [Concomitant]
     Active Substance: PROBIOTICS NOS
  4. OLMESARTAN [Concomitant]
     Active Substance: OLMESARTAN
  5. MULTIVITAMINS [Concomitant]
     Active Substance: VITAMINS
  6. MELATONIN [Concomitant]
     Active Substance: MELATONIN
  7. CITRACEL [Concomitant]
  8. GLUCOSAMINE [Concomitant]
     Active Substance: GLUCOSAMINE
  9. LOVASTATIN. [Concomitant]
     Active Substance: LOVASTATIN
  10. FLUTICASONE. [Concomitant]
     Active Substance: FLUTICASONE
  11. HYOSCYAMINE 0.125MG SUB VIRT [Suspect]
     Active Substance: HYOSCYAMINE SULFATE
     Indication: IRRITABLE BOWEL SYNDROME
     Dosage: ?          QUANTITY:1 TABLET(S);?
     Route: 060
  12. POLYVINYL ALCOHOL POVIDONE [Concomitant]
  13. ASPIRIN. [Concomitant]
     Active Substance: ASPIRIN
  14. OMEGA 3 FATTY ACIDS [Concomitant]
     Active Substance: OMEGA-3 FATTY ACIDS
  15. FISH OIL OMEGA 3 FATTY ACIDS [Concomitant]

REACTIONS (4)
  - Product taste abnormal [None]
  - Recalled product administered [None]
  - Anticholinergic syndrome [None]
  - Throat irritation [None]

NARRATIVE: CASE EVENT DATE: 20190603
